FAERS Safety Report 7958131-5 (Version None)
Quarter: 2011Q4

REPORT INFORMATION
  Report Type: 
  Country: None (occurrence: None)
  Receive Date: 20111201
  Receipt Date: 20111121
  Transmission Date: 20120403
  Serious: Yes (Other)
  Sender: FDA-Public Use
  Company Number: AUR-APL-2011-05926

PATIENT
  Age: 52 Year
  Sex: Female

DRUGS (4)
  1. CARBAMAZEPINE [Suspect]
     Indication: EPILEPSY
     Dosage: 600 MG,
  2. LAMOTRIGINE [Suspect]
     Indication: EPILEPSY
  3. CITALOPRAM HYDROBROMIDE [Concomitant]
     Indication: PRODUCT USED FOR UNKNOWN INDICATION
  4. BENDROFLUMETHIAZIDE (BENDROFLUMETHIAZIDE) [Suspect]
     Indication: PRODUCT USED FOR UNKNOWN INDICATION

REACTIONS (13)
  - HYPONATRAEMIA [None]
  - HYPERAMMONAEMIA [None]
  - CONFUSIONAL STATE [None]
  - LETHARGY [None]
  - HYPERREFLEXIA [None]
  - MUSCULAR WEAKNESS [None]
  - SOMNOLENCE [None]
  - VULVOVAGINAL DISCOMFORT [None]
  - HYPOKALAEMIA [None]
  - BLOOD LACTIC ACID INCREASED [None]
  - URINARY TRACT INFECTION ENTEROCOCCAL [None]
  - POLLAKIURIA [None]
  - COORDINATION ABNORMAL [None]
